FAERS Safety Report 21831495 (Version 1)
Quarter: 2023Q1

REPORT INFORMATION
  Report Type: Report from Study
  Country: US (occurrence: US)
  Receive Date: 20230106
  Receipt Date: 20230106
  Transmission Date: 20230417
  Serious: Yes (Hospitalization, Other)
  Sender: FDA-Public Use
  Company Number: US-TAIHO-2022-003516

PATIENT
  Age: 63 Year
  Sex: Female
  Weight: 77.11 kg

DRUGS (24)
  1. LONSURF [Suspect]
     Active Substance: TIPIRACIL HYDROCHLORIDE\TRIFLURIDINE
     Indication: Colon cancer
     Dosage: CURRENT CYCLE, DOSAGE AND FREQUENCY UNKNOWN
     Route: 048
     Dates: start: 20221122, end: 20221126
  2. COLCHICINE [Concomitant]
     Active Substance: COLCHICINE
     Indication: Product used for unknown indication
     Dosage: IN THE MORNING, END DATE: 21/11/2023
     Route: 048
     Dates: start: 20221121
  3. NORVASC [Concomitant]
     Active Substance: AMLODIPINE BESYLATE
     Indication: Product used for unknown indication
     Dosage: END DATE: 13/JUN/2023
     Route: 048
     Dates: start: 20221215
  4. AZITHROMYCIN [Concomitant]
     Active Substance: AZITHROMYCIN
     Indication: Product used for unknown indication
  5. LOPRESSOR [Concomitant]
     Active Substance: METOPROLOL TARTRATE
     Indication: Product used for unknown indication
     Dosage: MORNING AND AT BEDTIME
     Route: 048
     Dates: start: 20221215
  6. LOMOTIL [Concomitant]
     Active Substance: ATROPINE SULFATE\DIPHENOXYLATE HYDROCHLORIDE
     Indication: Product used for unknown indication
     Dosage: 2.5-0.025 MG, 2 TABLETS THREE TIMES A DAY (MORNING, NOON AND AT BEDTIME); END DATE: 15/MAR/2023
     Route: 048
     Dates: start: 20221215
  7. METOCLOPRAMIDE HYDROCHLORIDE [Concomitant]
     Active Substance: METOCLOPRAMIDE HYDROCHLORIDE
     Indication: Product used for unknown indication
  8. ELIQUIS [Concomitant]
     Active Substance: APIXABAN
     Indication: Product used for unknown indication
     Dosage: END DATE: 5/MAR/2023
     Route: 048
     Dates: start: 20221215
  9. POTASSIUM CHLORIDE [Concomitant]
     Active Substance: POTASSIUM CHLORIDE
     Indication: Product used for unknown indication
  10. MEGACE [Concomitant]
     Active Substance: MEGESTROL ACETATE
     Indication: Product used for unknown indication
     Dosage: 40 MG/ML SUSPENSION, MORNING
     Route: 048
     Dates: start: 20221121
  11. COMPAZINE [Concomitant]
     Active Substance: PROCHLORPERAZINE MALEATE
     Indication: Nausea
     Dosage: AS NEEDED FOR NAUSEA; END DATE: 20/JAN/2023
     Route: 048
     Dates: start: 20221121
  12. FUROSEMIDE [Concomitant]
     Active Substance: FUROSEMIDE
     Indication: Product used for unknown indication
  13. PREDNISONE [Concomitant]
     Active Substance: PREDNISONE
     Indication: Product used for unknown indication
  14. PROMETHAZINE HYDROCHLORIDE [Concomitant]
     Active Substance: PROMETHAZINE HYDROCHLORIDE
     Indication: Product used for unknown indication
  15. ZOFRAN [Concomitant]
     Active Substance: ONDANSETRON HYDROCHLORIDE
     Indication: Product used for unknown indication
     Dosage: ORAL DISINTEGRATING TABLET
     Route: 048
     Dates: start: 20221107
  16. QUESTRAN [Concomitant]
     Active Substance: CHOLESTYRAMINE
     Indication: Product used for unknown indication
     Dosage: MIX 1 SCOOP IN 2 TO 6 OUNCE OF WATER AND DRINK
     Dates: start: 20220930
  17. ALLOPURINOL [Concomitant]
     Active Substance: ALLOPURINOL
     Indication: Product used for unknown indication
  18. DICLOFENAC SODIUM [Concomitant]
     Active Substance: DICLOFENAC SODIUM
     Indication: Product used for unknown indication
     Route: 061
  19. BENTYL [Concomitant]
     Active Substance: DICYCLOMINE HYDROCHLORIDE
     Indication: Product used for unknown indication
     Dosage: MORNING, NOON AND DINNER
     Route: 048
     Dates: start: 20210917
  20. IMODIUM A-D [Concomitant]
     Active Substance: LOPERAMIDE HYDROCHLORIDE
     Indication: Product used for unknown indication
     Dosage: 1 TABLETS , AFTER BETWEEN LOMOTIL DOSES
     Route: 048
  21. PEPCID [Concomitant]
     Active Substance: FAMOTIDINE
     Indication: Product used for unknown indication
     Dosage: MORNING
     Route: 048
  22. MVASI [Concomitant]
     Active Substance: BEVACIZUMAB-AWWB
     Indication: Product used for unknown indication
     Dates: start: 20220606, end: 20221025
  23. MVASI [Concomitant]
     Active Substance: BEVACIZUMAB-AWWB
     Dosage: PLANNED TILL 21/FEB/2023
     Dates: start: 20221108
  24. MVASI [Concomitant]
     Active Substance: BEVACIZUMAB-AWWB
     Dates: start: 20220606

REACTIONS (7)
  - Metabolic acidosis [Recovered/Resolved]
  - Neutropenia [Unknown]
  - Blood magnesium decreased [Unknown]
  - Disease progression [Unknown]
  - Cough [Unknown]
  - Back pain [Unknown]
  - Oropharyngeal pain [Unknown]

NARRATIVE: CASE EVENT DATE: 20221101
